FAERS Safety Report 23426734 (Version 3)
Quarter: 2024Q1

REPORT INFORMATION
  Report Type: Spontaneous
  Country: US (occurrence: US)
  Receive Date: 20240122
  Receipt Date: 20240201
  Transmission Date: 20240410
  Serious: Yes (Hospitalization)
  Sender: FDA-Public Use
  Company Number: US-MYLANLABS-2024M1003577

PATIENT
  Age: 79 Year
  Sex: Female
  Weight: 61.23 kg

DRUGS (1)
  1. WIXELA INHUB [Suspect]
     Active Substance: FLUTICASONE PROPIONATE\SALMETEROL XINAFOATE
     Indication: Product used for unknown indication
     Dosage: UNK, BID (INHALE TWICE A DAY EVERY 12 HOURS)
     Route: 055
     Dates: start: 20231219, end: 20240102

REACTIONS (8)
  - Vomiting [Recovered/Resolved]
  - Cough [Recovered/Resolved]
  - Pneumonia [Unknown]
  - Dizziness [Unknown]
  - Eye disorder [Unknown]
  - Presyncope [Unknown]
  - Anxiety [Unknown]
  - Extra dose administered [Unknown]

NARRATIVE: CASE EVENT DATE: 20240102
